FAERS Safety Report 9670574 (Version 2)
Quarter: 2013Q4

REPORT INFORMATION
  Report Type: Spontaneous
  Country: US (occurrence: US)
  Receive Date: 20131106
  Receipt Date: 20131204
  Transmission Date: 20140711
  Serious: No
  Sender: FDA-Public Use
  Company Number: US-BIOGENIDEC-2013BI106659

PATIENT
  Age: 52 Year
  Sex: Female

DRUGS (9)
  1. TECFIDERA [Suspect]
     Indication: MULTIPLE SCLEROSIS
     Dates: start: 20130405
  2. TECFIDERA [Suspect]
     Indication: MULTIPLE SCLEROSIS
     Route: 048
     Dates: start: 201304
  3. D2000 ULTRA STRENGTH [Concomitant]
  4. PAROXETINE HCL [Concomitant]
  5. OMEPRAZOLE [Concomitant]
  6. EPITOL [Concomitant]
  7. CYCLOBENZAPRINE HCL [Concomitant]
  8. NAPROXEN [Concomitant]
  9. LISINOPRIL [Concomitant]

REACTIONS (2)
  - Transient ischaemic attack [Recovered/Resolved]
  - Depression [Recovered/Resolved]
